FAERS Safety Report 10697828 (Version 9)
Quarter: 2016Q1

REPORT INFORMATION
  Report Type: Spontaneous
  Country: US (occurrence: US)
  Receive Date: 20150108
  Receipt Date: 20160307
  Transmission Date: 20160525
  Serious: Yes (Other)
  Sender: FDA-Public Use
  Company Number: US-CELGENE-USA-2015010687

PATIENT
  Age: 47 Year
  Sex: Female

DRUGS (2)
  1. POMALYST [Suspect]
     Active Substance: POMALIDOMIDE
     Indication: PLASMA CELL MYELOMA
     Route: 048
     Dates: start: 20141105
  2. POMALYST [Suspect]
     Active Substance: POMALIDOMIDE
     Route: 048

REACTIONS (1)
  - Human chorionic gonadotropin increased [Not Recovered/Not Resolved]

NARRATIVE: CASE EVENT DATE: 20141212
